FAERS Safety Report 4471220-5 (Version None)
Quarter: 2004Q4

REPORT INFORMATION
  Report Type: 
  Country: None (occurrence: None)
  Receive Date: 20041011
  Receipt Date: 20041004
  Transmission Date: 20050328
  Serious: Yes (Death, Life-Threatening, Hospitalization)
  Sender: FDA-Public Use
  Company Number: BR-MERCK-0410BRA00209

PATIENT
  Age: 27 Year
  Sex: Female

DRUGS (4)
  1. AMITRIPTYLINE HYDROCHLORIDE [Concomitant]
     Route: 065
  2. AMITRIPTYLINE HYDROCHLORIDE [Concomitant]
     Route: 065
  3. PENICILLIN (UNSPECIFIED) [Concomitant]
     Route: 065
  4. VIOXX [Suspect]
     Indication: PAIN IN EXTREMITY
     Route: 048
     Dates: start: 20020501, end: 20020801

REACTIONS (2)
  - ABDOMINAL PAIN [None]
  - CARDIAC FAILURE [None]
